FAERS Safety Report 15880470 (Version 3)
Quarter: 2019Q2

REPORT INFORMATION
  Report Type: Spontaneous
  Country: AR (occurrence: AR)
  Receive Date: 20190128
  Receipt Date: 20190409
  Transmission Date: 20190711
  Serious: Yes (Other)
  Sender: FDA-Public Use
  Company Number: AR-NOVOPROD-640353

PATIENT
  Age: 112 Month
  Sex: Male
  Weight: 23 kg

DRUGS (1)
  1. NORDITROPIN [Suspect]
     Active Substance: SOMATROPIN
     Indication: GROWTH HORMONE DEFICIENCY
     Dosage: 0.60 MG, QD (FROM MONDAY TO SATURDAY)
     Route: 058
     Dates: start: 20181204, end: 20181220

REACTIONS (2)
  - Oedema [Recovered/Resolved]
  - Dermoid cyst [Not Recovered/Not Resolved]

NARRATIVE: CASE EVENT DATE: 20181219
